FAERS Safety Report 10705428 (Version 2)
Quarter: 2015Q1

REPORT INFORMATION
  Report Type: Spontaneous
  Country: US (occurrence: US)
  Receive Date: 20150112
  Receipt Date: 20150112
  Transmission Date: 20150721
  Serious: No
  Sender: FDA-Public Use
  Company Number: US-GLAXOSMITHKLINE-A1065083A

PATIENT

DRUGS (1)
  1. PROMACTA [Suspect]
     Active Substance: ELTROMBOPAG OLAMINE
     Indication: PRODUCT USED FOR UNKNOWN INDICATION
     Dosage: 25MG TABLET, AT 2 TABLETS ONCE DAILY FOR 50MG DAILY DOSEPER CTA, 25 MG TABLET UNKNOWN DOSING
     Route: 065

REACTIONS (1)
  - Hospice care [Recovered/Resolved]
